FAERS Safety Report 21694308 (Version 1)
Quarter: 2022Q4

REPORT INFORMATION
  Report Type: Report from Study
  Country: DK (occurrence: DK)
  Receive Date: 20221207
  Receipt Date: 20221207
  Transmission Date: 20230113
  Serious: Yes (Hospitalization)
  Sender: FDA-Public Use
  Company Number: DK-002147023-NVSC2022DK063769

PATIENT
  Age: 55 Year
  Sex: Female
  Weight: 67.3 kg

DRUGS (53)
  1. ALLOPURINOL [Suspect]
     Active Substance: ALLOPURINOL
     Indication: Prophylaxis
     Dosage: UNK, THERAPY END DATE : ASKU
     Route: 065
     Dates: start: 20220211
  2. ALLOPURINOL [Suspect]
     Active Substance: ALLOPURINOL
     Dosage: 300 MILLIGRAM DAILY; 300 MG AM (EVERY MORNING), DURATION : 25 DAYS
     Route: 065
     Dates: start: 20220211, end: 20220307
  3. LENALIDOMIDE [Suspect]
     Active Substance: LENALIDOMIDE
     Indication: Follicular lymphoma stage IV
     Dosage: 20 MILLIGRAM DAILY; DURATION : 14 DAYS
     Route: 065
     Dates: start: 20220321, end: 20220403
  4. LENALIDOMIDE [Suspect]
     Active Substance: LENALIDOMIDE
     Indication: Follicular lymphoma
     Dosage: 15 MILLIGRAM DAILY; THERAPY END DATE : NASK
     Route: 065
     Dates: start: 20220411
  5. LENALIDOMIDE [Suspect]
     Active Substance: LENALIDOMIDE
     Indication: Histology
     Dosage: 20 MILLIGRAM DAILY; DURATION : 3 DAYS
     Route: 065
     Dates: start: 20220321, end: 20220323
  6. LENALIDOMIDE [Suspect]
     Active Substance: LENALIDOMIDE
     Indication: Follicular lymphoma
     Dosage: 20 MILLIGRAM DAILY; DURATION : 21 DAYS
     Route: 065
     Dates: start: 20220214, end: 20220306
  7. LENALIDOMIDE [Suspect]
     Active Substance: LENALIDOMIDE
     Indication: Follicular lymphoma stage IV
     Dosage: 20 MILLIGRAM DAILY; DURATION : 5 DAYS
     Route: 065
     Dates: start: 20220314, end: 20220318
  8. LENALIDOMIDE [Suspect]
     Active Substance: LENALIDOMIDE
     Indication: Histology
  9. RITUXIMAB [Suspect]
     Active Substance: RITUXIMAB
     Indication: Follicular lymphoma
     Dosage: UNIT DOSE : 375 MILLIGRAM/SQ. METER, FREQUENCY TIME : 1 WEEKS, DURATION : 29 DAYS
     Route: 065
     Dates: start: 20220214, end: 20220314
  10. RITUXIMAB [Suspect]
     Active Substance: RITUXIMAB
     Indication: Follicular lymphoma stage IV
     Dosage: UNIT DOSE : 375 MILLIGRAM/SQ. METER, FREQUENCY TIME : 4 WEEKS, THERAPY END DATE : NASK
     Route: 065
     Dates: start: 20220411
  11. RITUXIMAB [Suspect]
     Active Substance: RITUXIMAB
     Indication: Histology abnormal
     Dosage: UNIT DOSE : 375 MG/M2, THERAPY END DATE : ASKU
     Route: 065
     Dates: start: 20220221
  12. EPCORITAMAB [Suspect]
     Active Substance: EPCORITAMAB
     Indication: Follicular lymphoma stage IV
     Dosage: 0.16 MILLIGRAM SINGLE, UNIT DOSE : 0.16 MG, DURATION : 1 DAYS
     Route: 065
     Dates: start: 20220214, end: 20220214
  13. EPCORITAMAB [Suspect]
     Active Substance: EPCORITAMAB
     Dosage: 0.8 MILLIGRAM SINGLE, UNIT DOSE : 0.8 MG, DURATION : 1 DAYS
     Route: 065
     Dates: start: 20220221, end: 20220221
  14. EPCORITAMAB [Suspect]
     Active Substance: EPCORITAMAB
     Dosage: UNIT DOSE : 48 MILLIGRAM, DURATION : 1 DAYS
     Route: 065
     Dates: start: 20220404, end: 20220404
  15. EPCORITAMAB [Suspect]
     Active Substance: EPCORITAMAB
     Dosage: UNIT DOSE : 48 MILLIGRAM, DURATION : 15 DAYS
     Route: 065
     Dates: start: 20220228, end: 20220314
  16. EPCORITAMAB [Suspect]
     Active Substance: EPCORITAMAB
     Dosage: UNIT DOSE : 48 MILLIGRAM, (CYCLE 3 FULL DOSE), DURATION : 1 DAYS
     Route: 065
     Dates: start: 20220411, end: 20220411
  17. CLEMASTINE FUMARATE [Concomitant]
     Active Substance: CLEMASTINE FUMARATE
     Indication: Product used for unknown indication
     Dosage: UNIT DOSE : 1 MG
     Route: 065
     Dates: start: 20220307
  18. CLEMASTINE FUMARATE [Concomitant]
     Active Substance: CLEMASTINE FUMARATE
     Dosage: UNIT DOSE : 1 MG
     Route: 065
     Dates: start: 20220314
  19. CLEMASTINE FUMARATE [Concomitant]
     Active Substance: CLEMASTINE FUMARATE
     Dosage: UNIT DOSE : 1 MG, DURATION : 22 DAYS
     Route: 065
     Dates: start: 20220214, end: 20220307
  20. CLEMASTINE FUMARATE [Concomitant]
     Active Substance: CLEMASTINE FUMARATE
     Dosage: UNIT DOSE : 1 MG
     Route: 065
     Dates: start: 20220411
  21. CLEMASTINE FUMARATE [Concomitant]
     Active Substance: CLEMASTINE FUMARATE
     Dosage: UNIT DOSE : 1 MG
     Route: 065
     Dates: start: 20220228
  22. CLEMASTINE FUMARATE [Concomitant]
     Active Substance: CLEMASTINE FUMARATE
     Dosage: UNIT DOSE : 1 MG, DURATION : 3 DAYS
     Route: 065
     Dates: start: 20220315, end: 20220317
  23. CLEMASTINE FUMARATE [Concomitant]
     Active Substance: CLEMASTINE FUMARATE
     Dosage: UNIT DOSE : 1 MG, DURATION : 4 DAYS
     Route: 065
     Dates: start: 20220404, end: 20220407
  24. CLEMASTINE FUMARATE [Concomitant]
     Active Substance: CLEMASTINE FUMARATE
     Dosage: UNIT DOSE : 1 MG
     Route: 065
     Dates: start: 20220221
  25. NYSTATIN [Concomitant]
     Active Substance: NYSTATIN
     Indication: Product used for unknown indication
     Dosage: UNK, DURATION : 37 DAYS
     Dates: start: 20220227, end: 20220404
  26. SULFAMETHOXAZOLE\TRIMETHOPRIM [Concomitant]
     Active Substance: SULFAMETHOXAZOLE\TRIMETHOPRIM
     Indication: Product used for unknown indication
     Dosage: 400/80 MILLIGRAM
     Route: 065
     Dates: start: 20220214
  27. ACETAMINOPHEN [Concomitant]
     Active Substance: ACETAMINOPHEN
     Indication: Product used for unknown indication
     Dosage: UNK
     Route: 065
     Dates: start: 20220120
  28. ACYCLOVIR [Concomitant]
     Active Substance: ACYCLOVIR
     Indication: Product used for unknown indication
     Dosage: UNK
     Route: 065
     Dates: start: 20220214
  29. FEXOFENADINE [Concomitant]
     Active Substance: FEXOFENADINE HYDROCHLORIDE
     Indication: Product used for unknown indication
     Dosage: UNK
     Route: 065
     Dates: start: 20220321
  30. MAGNESIUM HYDROXIDE [Concomitant]
     Active Substance: MAGNESIUM HYDROXIDE
     Indication: Product used for unknown indication
     Dosage: UNK
     Route: 065
  31. PREDNISOLONE [Concomitant]
     Active Substance: PREDNISOLONE
     Indication: Product used for unknown indication
     Dosage: UNK, ROUTE OF ADMINISTRATION : UNKNOWN .
     Route: 065
     Dates: start: 20220414
  32. PREDNISOLONE [Concomitant]
     Active Substance: PREDNISOLONE
     Dosage: UNK, ROUTE OF ADMINISTRATION : UNKNOWN, DURATION : 6 DAYS
     Route: 065
     Dates: start: 20220323, end: 20220328
  33. PREDNISOLONE [Concomitant]
     Active Substance: PREDNISOLONE
     Dosage: UNIT DOSE : 100 MG, DURATION : 3 DAYS
     Route: 065
     Dates: start: 20220222, end: 20220224
  34. PREDNISOLONE [Concomitant]
     Active Substance: PREDNISOLONE
     Dosage: UNIT DOSE : 100 MG
     Route: 065
     Dates: start: 20220314
  35. PREDNISOLONE [Concomitant]
     Active Substance: PREDNISOLONE
     Dosage: UNIT DOSE : 100 MG, DURATION : 4 DAYS
     Route: 065
     Dates: start: 20220404, end: 20220407
  36. PREDNISOLONE [Concomitant]
     Active Substance: PREDNISOLONE
     Dosage: UNIT DOSE : 100 MG, DURATION : 3 DAYS
     Route: 065
     Dates: start: 20220215, end: 20220217
  37. PREDNISOLONE [Concomitant]
     Active Substance: PREDNISOLONE
     Dosage: UNK, ROUTE OF ADMINISTRATION : UNKNOWN .
     Route: 065
     Dates: start: 20220328
  38. PREDNISOLONE [Concomitant]
     Active Substance: PREDNISOLONE
     Dosage: UNIT DOSE : 100 MG, DURATION : 3 DAYS
     Route: 065
     Dates: start: 20220228, end: 20220302
  39. PREDNISOLONE [Concomitant]
     Active Substance: PREDNISOLONE
     Dosage: UNIT DOSE : 100 MG, DURATION : 4 DAYS
     Route: 065
     Dates: start: 20220411, end: 20220414
  40. PREDNISOLONE [Concomitant]
     Active Substance: PREDNISOLONE
     Dosage: UNK, ROUTE OF ADMINISTRATION : UNKNOWN .
     Route: 065
     Dates: start: 20220404
  41. PREDNISOLONE [Concomitant]
     Active Substance: PREDNISOLONE
     Dosage: UNIT DOSE : 100 MG, DURATION : 3 DAYS
     Route: 065
     Dates: start: 20220301, end: 20220303
  42. PREDNISOLONE [Concomitant]
     Active Substance: PREDNISOLONE
     Dosage: UNIT DOSE : 100 MG, DURATION : 3 DAYS
     Route: 065
     Dates: start: 20220315, end: 20220317
  43. PREDNISOLONE [Concomitant]
     Active Substance: PREDNISOLONE
     Dosage: UNIT DOSE : 100 MG, DURATION : 3 DAYS
     Route: 065
     Dates: start: 20220308, end: 20220310
  44. BETNOVATE [Concomitant]
     Active Substance: BETAMETHASONE
     Indication: Product used for unknown indication
     Dosage: UNK, DURATION : 13 DAYS
     Route: 065
     Dates: start: 20220323, end: 20220404
  45. METOCLOPRAMIDE [Concomitant]
     Active Substance: METOCLOPRAMIDE
     Indication: Product used for unknown indication
     Dosage: UNK, DURATION : 35 DAYS
     Route: 065
     Dates: start: 20220301, end: 20220404
  46. CALCIUM CARBONATE [Concomitant]
     Active Substance: CALCIUM CARBONATE
     Indication: Product used for unknown indication
     Dosage: UNK
     Route: 065
  47. SOLU-MEDROL [Concomitant]
     Active Substance: METHYLPREDNISOLONE SODIUM SUCCINATE
     Indication: Product used for unknown indication
     Dosage: UNIT DOSE : 80 MILLIGRAM
     Route: 065
     Dates: start: 20220228
  48. SOLU-MEDROL [Concomitant]
     Active Substance: METHYLPREDNISOLONE SODIUM SUCCINATE
     Dosage: UNIT DOSE : 80 MILLIGRAM
     Route: 065
     Dates: start: 20220307
  49. SOLU-MEDROL [Concomitant]
     Active Substance: METHYLPREDNISOLONE SODIUM SUCCINATE
     Dosage: UNIT DOSE : 80 MILLIGRAM
     Route: 065
     Dates: start: 20220214
  50. SOLU-MEDROL [Concomitant]
     Active Substance: METHYLPREDNISOLONE SODIUM SUCCINATE
     Dosage: UNIT DOSE : 80 MILLIGRAM
     Route: 065
     Dates: start: 20220221
  51. BALANCID NOVUM [Concomitant]
     Indication: Product used for unknown indication
     Dosage: UNK, DURATION : 36 DAYS
     Route: 065
     Dates: start: 20220228, end: 20220404
  52. PANTOPRAZOLE [Concomitant]
     Active Substance: PANTOPRAZOLE
     Indication: Product used for unknown indication
     Dosage: UNK
     Route: 065
     Dates: start: 20220320
  53. MAGNYL [Concomitant]
     Indication: Product used for unknown indication
     Dosage: UNK
     Route: 065
     Dates: start: 20220214

REACTIONS (17)
  - Cytokine release syndrome [Recovered/Resolved]
  - Pyrexia [Recovered/Resolved]
  - Cytokine release syndrome [Recovered/Resolved]
  - Pyrexia [Recovered/Resolved]
  - Cytokine release syndrome [Recovered/Resolved]
  - Pyrexia [Recovered/Resolved]
  - Pyrexia [Recovered/Resolved]
  - Cytokine release syndrome [Not Recovered/Not Resolved]
  - Pyrexia [Recovered/Resolved]
  - Rash maculo-papular [Recovered/Resolved]
  - Cytokine release syndrome [Recovered/Resolved]
  - Pyrexia [Recovered/Resolved]
  - Pyrexia [Recovered/Resolved]
  - Cytokine release syndrome [Recovered/Resolved]
  - Cytomegalovirus test positive [Unknown]
  - Infusion related reaction [Unknown]
  - Hypersensitivity [Unknown]

NARRATIVE: CASE EVENT DATE: 20220214
